FAERS Safety Report 13539837 (Version 1)
Quarter: 2017Q2

REPORT INFORMATION
  Report Type: Spontaneous
  Country: LT (occurrence: LT)
  Receive Date: 20170512
  Receipt Date: 20170512
  Transmission Date: 20170830
  Serious: Yes (Hospitalization, Other)
  Sender: FDA-Public Use
  Company Number: LT-ALEMBIC PHARMACUETICALS LIMITED-2017SCAL000398

PATIENT

DRUGS (4)
  1. LAMOTRIGINE. [Suspect]
     Active Substance: LAMOTRIGINE
     Dosage: 700 MG, UNK
  2. CALCIUM [Concomitant]
     Active Substance: CALCIUM
     Indication: SEIZURE
     Dosage: UNK
  3. LAMOTRIGINE. [Suspect]
     Active Substance: LAMOTRIGINE
     Indication: SEIZURE
     Dosage: UNK
     Route: 065
  4. VITAMIN D                          /00107901/ [Concomitant]
     Active Substance: ERGOCALCIFEROL
     Indication: SEIZURE
     Dosage: UNK

REACTIONS (3)
  - Vitamin D decreased [Unknown]
  - Suicide attempt [Unknown]
  - Blood calcium decreased [Unknown]
